FAERS Safety Report 24749211 (Version 1)
Quarter: 2024Q4

REPORT INFORMATION
  Report Type: Spontaneous
  Country: RO (occurrence: RO)
  Receive Date: 20241218
  Receipt Date: 20241218
  Transmission Date: 20250114
  Serious: Yes (Other)
  Sender: ELI LILLY AND COMPANY
  Company Number: RO-BRISTOL-MYERS SQUIBB COMPANY-2024-190303

PATIENT
  Age: 61 Year
  Sex: Male

DRUGS (4)
  1. PEMETREXED [Suspect]
     Active Substance: PEMETREXED
     Indication: Adenocarcinoma
     Dosage: 500 MG/M2, UNKNOWN
     Route: 065
  2. NIVOLUMAB [Suspect]
     Active Substance: NIVOLUMAB
     Indication: Adenocarcinoma
     Dosage: 360 MG, OTHER (EVERY 3 WEEKS)
     Route: 065
  3. IPILIMUMAB [Suspect]
     Active Substance: IPILIMUMAB
     Indication: Adenocarcinoma
     Dosage: 1 MG/KG, OTHER (EVERY 3 WEEKS)
     Route: 065
  4. CARBOPLATIN [Suspect]
     Active Substance: CARBOPLATIN
     Indication: Adenocarcinoma
     Dosage: UNK UNK, EVERY THREE WEEKS (CARBOPLATIN AUC 5)
     Route: 065

REACTIONS (2)
  - Immune-mediated hypothyroidism [Unknown]
  - Haemoglobin increased [Unknown]
